FAERS Safety Report 8260868-8 (Version None)
Quarter: 2012Q2

REPORT INFORMATION
  Report Type: 
  Country: None (occurrence: None)
  Receive Date: 20120402
  Receipt Date: 20120109
  Transmission Date: 20120825
  Serious: Yes (Death)
  Sender: FDA-Public Use
  Company Number: A0960602A

PATIENT
  Age: 88 Year
  Sex: Female

DRUGS (8)
  1. METOPROLOL TARTRATE [Concomitant]
  2. BLOOD PRESSURE MEDICATION [Concomitant]
  3. UNKNOWN [Concomitant]
  4. ASPIRIN [Concomitant]
  5. IRBESARTAN [Concomitant]
  6. DIGOXIN [Suspect]
     Indication: ATRIAL FIBRILLATION
     Dosage: UNK / UNKNOWN / UNKNOWN
  7. ANTIBIOTICS [Concomitant]
  8. DABIGATRAN ETEX MESILAT [Concomitant]

REACTIONS (1)
  - DEATH [None]
